FAERS Safety Report 5411000-7 (Version None)
Quarter: 2007Q3

REPORT INFORMATION
  Report Type: 
  Country: None (occurrence: None)
  Receive Date: 20070713
  Receipt Date: 20070614
  Transmission Date: 20080115
  Serious: No
  Sender: FDA-Public Use
  Company Number: 2007SP002246

PATIENT
  Age: 80 Year
  Sex: Female
  Weight: 63.5036 kg

DRUGS (5)
  1. LUNESTA [Suspect]
     Indication: INSOMNIA
     Dosage: 2 MG;HS;ORAL
     Route: 048
     Dates: start: 20070601
  2. CYMBALTA [Concomitant]
  3. EVISTA [Concomitant]
  4. ALEVE [Concomitant]
  5. OXYTROL [Concomitant]

REACTIONS (10)
  - ABNORMAL DREAMS [None]
  - ANXIETY [None]
  - CHEST PAIN [None]
  - DEPRESSION [None]
  - HEADACHE [None]
  - HOSTILITY [None]
  - MEMORY IMPAIRMENT [None]
  - NERVOUSNESS [None]
  - VISION BLURRED [None]
  - WEIGHT INCREASED [None]
